FAERS Safety Report 18027577 (Version 3)
Quarter: 2020Q4

REPORT INFORMATION
  Report Type: Spontaneous
  Country: US (occurrence: US)
  Receive Date: 20200715
  Receipt Date: 20201119
  Transmission Date: 20210113
  Serious: Yes (Other)
  Sender: FDA-Public Use
  Company Number: US-GILEAD-2020-0479887

PATIENT
  Age: 62 Year
  Sex: Male

DRUGS (1)
  1. TRUVADA [Suspect]
     Active Substance: EMTRICITABINE\TENOFOVIR DISOPROXIL FUMARATE
     Indication: HIV INFECTION
     Dosage: UNK
     Route: 048
     Dates: start: 20151015, end: 20190617

REACTIONS (8)
  - Skeletal injury [Not Recovered/Not Resolved]
  - Bone loss [Unknown]
  - Renal injury [Not Recovered/Not Resolved]
  - Renal failure [Unknown]
  - Multiple fractures [Unknown]
  - Osteonecrosis [Unknown]
  - Bone density decreased [Unknown]
  - Chronic kidney disease [Unknown]

NARRATIVE: CASE EVENT DATE: 20171012
